FAERS Safety Report 11942662 (Version 1)
Quarter: 2016Q1

REPORT INFORMATION
  Report Type: Spontaneous
  Country: US (occurrence: US)
  Receive Date: 20160125
  Receipt Date: 20160125
  Transmission Date: 20160526
  Serious: No
  Sender: FDA-Public Use
  Company Number: US-UNITED THERAPEUTICS-UNT-2015-007617

PATIENT
  Sex: Female
  Weight: 116.55 kg

DRUGS (2)
  1. LETAIRIS [Concomitant]
     Active Substance: AMBRISENTAN
     Indication: PRODUCT USED FOR UNKNOWN INDICATION
  2. REMODULIN [Suspect]
     Active Substance: TREPROSTINIL
     Indication: PULMONARY HYPERTENSION
     Dosage: 0.007 ?G/KG/MIN, CONTINUING
     Route: 058
     Dates: start: 20141117

REACTIONS (4)
  - Infusion site warmth [Unknown]
  - Infusion site pain [Unknown]
  - Infusion site erythema [Unknown]
  - Pyrexia [Unknown]
